FAERS Safety Report 8163134-4 (Version None)
Quarter: 2012Q1

REPORT INFORMATION
  Report Type: 
  Country: None (occurrence: None)
  Receive Date: 20120224
  Receipt Date: 20110913
  Transmission Date: 20120608
  Serious: No
  Sender: FDA-Public Use
  Company Number: US-PFIZER INC-K201101071

PATIENT
  Sex: Female

DRUGS (3)
  1. FLECTOR [Suspect]
     Indication: ARTHRITIS
  2. FLECTOR [Suspect]
     Indication: BACK PAIN
     Dosage: UNK PATCH, UNK
     Dates: start: 20100101
  3. FLECTOR [Suspect]
     Indication: INTERVERTEBRAL DISC DISORDER

REACTIONS (2)
  - HYPERHIDROSIS [None]
  - C-REACTIVE PROTEIN INCREASED [None]
